FAERS Safety Report 16222456 (Version 2)
Quarter: 2020Q3

REPORT INFORMATION
  Report Type: Spontaneous
  Country: US (occurrence: US)
  Receive Date: 20190422
  Receipt Date: 20200831
  Transmission Date: 20201102
  Serious: Yes (Hospitalization, Other)
  Sender: FDA-Public Use
  Company Number: US-JNJFOC-20190413371

PATIENT
  Age: 44 Year
  Sex: Female

DRUGS (1)
  1. XARELTO [Suspect]
     Active Substance: RIVAROXABAN
     Indication: PRODUCT USED FOR UNKNOWN INDICATION
     Route: 048
     Dates: start: 201504, end: 201607

REACTIONS (2)
  - Upper gastrointestinal haemorrhage [Unknown]
  - Haematemesis [Unknown]

NARRATIVE: CASE EVENT DATE: 20150628
